FAERS Safety Report 25967149 (Version 1)
Quarter: 2025Q4

REPORT INFORMATION
  Report Type: Spontaneous
  Country: US (occurrence: US)
  Receive Date: 20251028
  Receipt Date: 20251028
  Transmission Date: 20260119
  Serious: Yes (Other)
  Sender: COOPERSURGICAL
  Company Number: US-COOPERSURGICAL, INC.-2025CPS007439

PATIENT
  Sex: Female
  Weight: 49.887 kg

DRUGS (1)
  1. PARAGARD T 380A [Suspect]
     Active Substance: COPPER
     Indication: Contraception
     Dosage: UNK
     Route: 015
     Dates: start: 20070730

REACTIONS (17)
  - Reproductive complication associated with device [Unknown]
  - Device breakage [Recovered/Resolved]
  - Foreign body in urogenital tract [Recovered/Resolved]
  - Complication of device removal [Recovered/Resolved]
  - Embedded device [Recovered/Resolved]
  - Emotional distress [Unknown]
  - Uterine spasm [Not Recovered/Not Resolved]
  - Infection susceptibility increased [Unknown]
  - Libido decreased [Unknown]
  - Anxiety [Unknown]
  - Depression [Unknown]
  - Anger [Unknown]
  - Abnormal uterine bleeding [Not Recovered/Not Resolved]
  - Menstruation irregular [Unknown]
  - Pelvic pain [Unknown]
  - Vaginal haemorrhage [Unknown]
  - Pain [Unknown]

NARRATIVE: CASE EVENT DATE: 20160101
